FAERS Safety Report 7775878-4 (Version None)
Quarter: 2011Q3

REPORT INFORMATION
  Report Type: 
  Country: None (occurrence: None)
  Receive Date: 20110923
  Receipt Date: 20110916
  Transmission Date: 20111222
  Serious: Yes (Other)
  Sender: FDA-Public Use
  Company Number: US-ASTRAZENECA-2011SE56082

PATIENT
  Age: 56 Year
  Sex: Female

DRUGS (1)
  1. ARIMIDEX [Suspect]
     Route: 048

REACTIONS (5)
  - ARTHRITIS [None]
  - PAIN [None]
  - HYPERHIDROSIS [None]
  - NEOPLASM MALIGNANT [None]
  - MENOPAUSAL SYMPTOMS [None]
